FAERS Safety Report 4595861-X (Version None)
Quarter: 2005Q1

REPORT INFORMATION
  Report Type: 
  Country: None (occurrence: None)
  Receive Date: 20050224
  Receipt Date: 20050224
  Transmission Date: 20050727
  Serious: Yes (Disabling)
  Sender: FDA-Public Use
  Company Number: None

PATIENT
  Age: 22 Year
  Sex: Female
  Weight: 55.3388 kg

DRUGS (1)
  1. PERIACTIN [Suspect]

REACTIONS (3)
  - FEELING ABNORMAL [None]
  - FLAT AFFECT [None]
  - INSOMNIA [None]
